FAERS Safety Report 5491456-4 (Version None)
Quarter: 2007Q4

REPORT INFORMATION
  Report Type: 
  Country: None (occurrence: None)
  Receive Date: 20071018
  Receipt Date: 20071005
  Transmission Date: 20080405
  Serious: Yes (Other)
  Sender: FDA-Public Use
  Company Number: 2007S1009971

PATIENT
  Age: 73 Year
  Sex: Female

DRUGS (4)
  1. VERAPAMIL [Suspect]
     Dosage: 240 MG, DAILY, 240 MG, TWICE A DAY;
  2. METOPROLOL TARTRATE [Suspect]
     Dosage: 50 MG; TWICE A DAY;, 100 MG; TWICE A DAY, 50 MG; TWICE A DAY;
  3. MOEXIPRIL HCL [Suspect]
     Dosage: 15 MG; TWICE A DAY;
  4. FUROSEMIDE [Suspect]

REACTIONS (4)
  - ASTHENIA [None]
  - NODAL RHYTHM [None]
  - PRESYNCOPE [None]
  - SINUS BRADYCARDIA [None]
